FAERS Safety Report 6977491-5 (Version None)
Quarter: 2010Q3

REPORT INFORMATION
  Report Type: 
  Country: None (occurrence: None)
  Receive Date: 20100910
  Receipt Date: 20100907
  Transmission Date: 20110219
  Serious: Yes (Congenital Anomaly, Other)
  Sender: FDA-Public Use
  Company Number: IN-WATSON-2010-12120

PATIENT

DRUGS (2)
  1. LAMOTRIGINE [Suspect]
     Indication: DRUG EXPOSURE DURING PREGNANCY
     Dosage: UNK MG, DAILY
     Route: 064
  2. CLONAZEPAM [Suspect]
     Indication: DRUG EXPOSURE DURING PREGNANCY
     Dosage: UNK MG, DAILY
     Route: 064

REACTIONS (4)
  - CONGENITAL ANOMALY [None]
  - DRUG EXPOSURE DURING PREGNANCY [None]
  - PIERRE ROBIN SYNDROME [None]
  - SPINE MALFORMATION [None]
